FAERS Safety Report 7091912-1 (Version None)
Quarter: 2010Q4

REPORT INFORMATION
  Report Type: 
  Country: None (occurrence: None)
  Receive Date: 20101101
  Receipt Date: 20101015
  Transmission Date: 20110411
  Serious: Yes (Hospitalization)
  Sender: FDA-Public Use
  Company Number: 1000016997

PATIENT
  Sex: Male

DRUGS (2)
  1. ESCITALOPRAM [Suspect]
     Dosage: (10 MG,),ORAL ; 10 MG (10 MG,1 IN 1 D),ORAL
     Route: 048
  2. ESCITALOPRAM [Suspect]
     Dosage: 15 MG (15 MG,1 IN 1 D),ORAL
     Route: 048

REACTIONS (1)
  - VENTRICULAR EXTRASYSTOLES [None]
